FAERS Safety Report 7967403-X (Version None)
Quarter: 2011Q4

REPORT INFORMATION
  Report Type: 
  Country: None (occurrence: None)
  Receive Date: 20111209
  Receipt Date: 20111130
  Transmission Date: 20120403
  Serious: No
  Sender: FDA-Public Use
  Company Number: US-US-EMD SERONO, INC.-232843J10USA

PATIENT
  Sex: Female

DRUGS (6)
  1. MULTI-VITAMIN [Concomitant]
     Route: 048
  2. IRON [Concomitant]
     Route: 048
  3. VITAMIN B-12 [Concomitant]
     Route: 048
  4. REBIF [Suspect]
     Indication: MULTIPLE SCLEROSIS
     Route: 058
  5. CALCIUM [Concomitant]
     Route: 048
  6. REBIF [Suspect]
     Route: 058
     Dates: start: 20100308

REACTIONS (2)
  - INJECTION SITE REACTION [None]
  - INFLUENZA LIKE ILLNESS [None]
